FAERS Safety Report 4964624-5 (Version None)
Quarter: 2006Q2

REPORT INFORMATION
  Report Type: 
  Country: None (occurrence: None)
  Receive Date: 20060406
  Receipt Date: 20051019
  Transmission Date: 20061013
  Serious: Yes (Hospitalization, Other)
  Sender: FDA-Public Use
  Company Number: US-MERCK-0510USA08317

PATIENT
  Age: 52 Year
  Sex: Male
  Weight: 80 kg

DRUGS (19)
  1. VIOXX [Suspect]
     Indication: NECK PAIN
     Route: 048
     Dates: start: 20000101, end: 20010623
  2. VIOXX [Suspect]
     Indication: SHOULDER PAIN
     Route: 048
     Dates: start: 20000101, end: 20010623
  3. NITROGLYCERIN [Concomitant]
     Route: 065
  4. PERCOCET [Concomitant]
     Route: 065
  5. NEURONTIN [Concomitant]
     Route: 065
  6. EFFEXOR [Concomitant]
     Route: 065
  7. PREVACID [Concomitant]
     Route: 065
  8. ZOCOR [Concomitant]
     Route: 065
  9. PRINIVIL [Concomitant]
     Route: 065
  10. NORVASC [Concomitant]
     Route: 065
  11. WELLBUTRIN [Concomitant]
     Route: 065
  12. LOPRESSOR [Concomitant]
     Route: 065
  13. IMDUR [Concomitant]
     Route: 065
  14. ASPIRIN [Concomitant]
     Route: 065
  15. KLONOPIN [Concomitant]
     Route: 065
  16. IBUPROFEN [Concomitant]
     Route: 065
  17. TYLENOL (CAPLET) [Concomitant]
     Route: 065
  18. SKELAXIN [Concomitant]
     Route: 065
  19. GABAPENTIN [Concomitant]
     Route: 065

REACTIONS (2)
  - CHEST PAIN [None]
  - MYOCARDIAL INFARCTION [None]
